FAERS Safety Report 8338643-5 (Version None)
Quarter: 2012Q2

REPORT INFORMATION
  Report Type: 
  Country: None (occurrence: None)
  Receive Date: 20120504
  Receipt Date: 20120417
  Transmission Date: 20120825
  Serious: No
  Sender: FDA-Public Use
  Company Number: VE-PFIZER INC-2012096334

PATIENT
  Age: 80 Year
  Sex: Female

DRUGS (1)
  1. LIPITOR [Suspect]
     Dosage: 80 MG, UNK

REACTIONS (1)
  - NO ADVERSE EVENT [None]
